FAERS Safety Report 14266809 (Version 1)
Quarter: 2017Q4

REPORT INFORMATION
  Report Type: Spontaneous
  Country: AU (occurrence: AU)
  Receive Date: 20171211
  Receipt Date: 20171211
  Transmission Date: 20180321
  Serious: Yes (Other)
  Sender: FDA-Public Use
  Company Number: AU-ORION CORPORATION ORION PHARMA-TREX2017-4027

PATIENT
  Sex: Female

DRUGS (4)
  1. METHOTREXATE. [Suspect]
     Active Substance: METHOTREXATE
     Indication: PUSTULAR PSORIASIS
     Route: 065
     Dates: start: 2008, end: 2008
  2. METHOTREXATE. [Suspect]
     Active Substance: METHOTREXATE
     Route: 048
     Dates: start: 2009, end: 2009
  3. FOLIC ACID. [Concomitant]
     Active Substance: FOLIC ACID
     Dosage: ON THE FOLLOWING DAY OF METHOTREXATE
     Route: 065
     Dates: start: 2008, end: 2008
  4. FOLIC ACID. [Concomitant]
     Active Substance: FOLIC ACID
     Dosage: ON THE FOLLOWING DAY OF METHOTREXATE
     Route: 065
     Dates: start: 2009, end: 2009

REACTIONS (3)
  - Transaminases increased [Unknown]
  - Nausea [Unknown]
  - Blood creatinine increased [Unknown]

NARRATIVE: CASE EVENT DATE: 2008
